FAERS Safety Report 9431279 (Version 1)
Quarter: 2013Q3

REPORT INFORMATION
  Report Type: Spontaneous
  Country: KR (occurrence: KR)
  Receive Date: 20130730
  Receipt Date: 20130730
  Transmission Date: 20140515
  Serious: Yes (Life-Threatening)
  Sender: FDA-Public Use
  Company Number: KR-MYLANLABS-2013S1016164

PATIENT
  Sex: 0

DRUGS (4)
  1. LIDOCAINE [Suspect]
     Indication: EPIDURAL ANALGESIA
     Dosage: 1% (TEST DOSE)
     Route: 064
  2. EPINEPHRINE [Suspect]
     Indication: EPIDURAL ANALGESIA
     Dosage: 100MICROG (TEST DOSE)
     Route: 064
  3. ROPIVACAINE [Suspect]
     Indication: EPIDURAL ANALGESIA
     Dosage: 0.75%
     Route: 064
  4. FENTANYL [Suspect]
     Indication: EPIDURAL ANALGESIA
     Dosage: 100 MICROG
     Route: 064

REACTIONS (2)
  - Bradycardia foetal [Recovered/Resolved]
  - Exposure during pregnancy [Recovered/Resolved]
